FAERS Safety Report 16950973 (Version 2)
Quarter: 2021Q1

REPORT INFORMATION
  Report Type: Spontaneous
  Country: IN (occurrence: IN)
  Receive Date: 20191023
  Receipt Date: 20210121
  Transmission Date: 20210419
  Serious: Yes (Hospitalization)
  Sender: FDA-Public Use
  Company Number: IN-PFIZER INC-2018474876

PATIENT
  Age: 72 Year
  Sex: Female

DRUGS (1)
  1. PALBACE [Suspect]
     Active Substance: PALBOCICLIB
     Indication: BREAST CANCER METASTATIC
     Dosage: 125 MG, 1X/DAY
     Route: 048
     Dates: start: 20180606

REACTIONS (5)
  - Nasopharyngitis [Unknown]
  - Skin disorder [Unknown]
  - Dyspnoea [Unknown]
  - Bone disorder [Unknown]
  - Malaise [Unknown]

NARRATIVE: CASE EVENT DATE: 2019
